FAERS Safety Report 10403416 (Version 2)
Quarter: 2014Q3

REPORT INFORMATION
  Report Type: Spontaneous
  Country: FR (occurrence: FR)
  Receive Date: 20140822
  Receipt Date: 20140829
  Transmission Date: 20150326
  Serious: Yes (Disabling, Other)
  Sender: FDA-Public Use
  Company Number: FR-TEVA-502423ISR

PATIENT
  Age: 68 Year
  Sex: Female

DRUGS (15)
  1. AVLOCARDYL 40MG [Concomitant]
     Dosage: 1 TABLET DAILY;
  2. DUPHALAC [Concomitant]
     Active Substance: LACTULOSE
     Dosage: 2 DOSAGE FORMS DAILY;
  3. XANAX 0.5MG [Concomitant]
     Dosage: 1 DOSAGE FORMS DAILY;
  4. PRIMPERAN 10MG [Concomitant]
     Indication: NAUSEA
     Dosage: 3 TABLET DAILY; IN CASE OF NAUSEA
  5. CISPLATINE TEVA 1MG/1ML [Suspect]
     Active Substance: CISPLATIN
     Indication: OSTEOSARCOMA
     Dosage: 4 COURSES; CUMULATIVE DOSE OF CISPLATIN : 360MG/M2 I.E.566.28MG.
     Route: 042
     Dates: start: 20140221, end: 20140316
  6. HOLOXAN [Suspect]
     Active Substance: IFOSFAMIDE
     Dosage: DOSE REDUCED AT 80%
     Route: 042
     Dates: start: 20140404, end: 20140612
  7. OXYCONTIN LP 30MG [Concomitant]
     Dosage: 2 DOSAGE FORMS DAILY;
  8. NEULASTA 6MG [Concomitant]
     Dosage: 1 INJECTION THE DAY FOLLOWING CHEMOTHERAPY COURSE DURING 3 COURSES
     Route: 058
  9. CISPLATINE TEVA 1MG/1ML [Suspect]
     Active Substance: CISPLATIN
     Dosage: DOSE REDUCED OF 80%
     Route: 042
     Dates: start: 20140404, end: 20140510
  10. DIFFU K 600MG [Concomitant]
     Dosage: 2 DOSAGE FORMS DAILY;
  11. HOLOXAN [Suspect]
     Active Substance: IFOSFAMIDE
     Indication: OSTEOSARCOMA
     Dosage: 5 COURSES
     Route: 042
     Dates: start: 20140221, end: 20140316
  12. TARDYFERON 80MG [Concomitant]
     Dosage: 1 TABLET DAILY;
  13. LOVENOX [Concomitant]
     Active Substance: ENOXAPARIN SODIUM
     Dosage: 4000 IU (INTERNATIONAL UNIT) DAILY;
  14. DOLIPRANE [Concomitant]
     Active Substance: ACETAMINOPHEN
     Indication: PAIN
     Dosage: 4 DOSAGE FORMS DAILY; IF PAIN
  15. ABSTRAL 100 MCG [Concomitant]
     Indication: PAIN
     Dosage: 6 DOSAGE FORMS DAILY; IN CASE OF PAIN

REACTIONS (13)
  - Agranulocytosis [Unknown]
  - Pancytopenia [Unknown]
  - Thrombocytopenia [Unknown]
  - Decreased appetite [Unknown]
  - Hypokalaemia [Unknown]
  - Ototoxicity [Not Recovered/Not Resolved]
  - Anaemia [Unknown]
  - Hypomagnesaemia [Unknown]
  - Deafness [Not Recovered/Not Resolved]
  - Asthenia [Unknown]
  - Constipation [Unknown]
  - Pyrexia [Unknown]
  - Encephalopathy [Unknown]

NARRATIVE: CASE EVENT DATE: 20140221
